FAERS Safety Report 16920315 (Version 1)
Quarter: 2019Q4

REPORT INFORMATION
  Report Type: Spontaneous
  Country: US (occurrence: US)
  Receive Date: 20190823
  Receipt Date: 20190823
  Transmission Date: 20200122
  Serious: No
  Sender: FDA-Public Use
  Company Number: None

PATIENT
  Age: 65 Year
  Sex: Female
  Weight: 94.35 kg

DRUGS (1)
  1. TETRAVISC [Suspect]
     Active Substance: TETRACAINE HYDROCHLORIDE
     Indication: ANAESTHESIA
     Route: 047
     Dates: start: 20190731

REACTIONS (4)
  - Eye infection staphylococcal [None]
  - Recalled product administered [None]
  - Endophthalmitis [None]
  - Instillation site infection [None]
